FAERS Safety Report 5679234-4 (Version None)
Quarter: 2008Q1

REPORT INFORMATION
  Report Type: 
  Country: None (occurrence: None)
  Receive Date: 20080321
  Receipt Date: 20080310
  Transmission Date: 20080703
  Serious: Yes (Hospitalization, Other)
  Sender: FDA-Public Use
  Company Number: 2008005446

PATIENT
  Age: 32 Year
  Sex: Female

DRUGS (6)
  1. SUDAFED 12 HOUR [Suspect]
     Indication: NASAL CONGESTION
     Dosage: 1 CAPSULE EVERY 6 HOURS; 3 TOTAL, ORAL
     Route: 048
     Dates: start: 20071220, end: 20071220
  2. STEMETIL ^AVENTIS PHARMA^ (PROCHLORPERAZINE) [Concomitant]
  3. NUMARK (BUDESONIDE) [Concomitant]
  4. AMOXIL [Concomitant]
  5. OVRANETTE (ETHINYLESTRADIOL, LEVONOGRESTREL) [Concomitant]
  6. ACETAMINOPHEN [Concomitant]

REACTIONS (12)
  - CEREBROVASCULAR SPASM [None]
  - DISEASE PROGRESSION [None]
  - ENCEPHALITIS [None]
  - HEADACHE [None]
  - HEART RATE IRREGULAR [None]
  - HYPERSENSITIVITY [None]
  - INFLUENZA LIKE ILLNESS [None]
  - INTRACRANIAL PRESSURE INCREASED [None]
  - MEMORY IMPAIRMENT [None]
  - MENINGISM [None]
  - PARAESTHESIA [None]
  - PHOTOPHOBIA [None]
